FAERS Safety Report 6610493-7 (Version None)
Quarter: 2010Q1

REPORT INFORMATION
  Report Type: 
  Country: None (occurrence: None)
  Receive Date: 20100302
  Receipt Date: 20100222
  Transmission Date: 20100710
  Serious: Yes (Other)
  Sender: FDA-Public Use
  Company Number: PHHY2009JP52160

PATIENT
  Sex: Male
  Weight: 63 kg

DRUGS (14)
  1. COMTAN [Suspect]
     Indication: PARKINSON'S DISEASE
     Dosage: 400 MG, DAILY
     Route: 048
     Dates: start: 20070628
  2. COMTAN [Suspect]
     Dosage: 300 MG, DAILY
     Route: 048
     Dates: start: 20070609
  3. CARBIDOPA AND LEVODOPA [Concomitant]
     Indication: PARKINSON'S DISEASE
     Dosage: 450 MG, UNK
     Route: 048
     Dates: start: 19960322
  4. PRAMIPEXOLE DIHYDROCHLORIDE [Concomitant]
     Indication: PARKINSON'S DISEASE
     Dosage: 2 MG, UNK
     Route: 048
  5. METHYCOBAL [Concomitant]
     Indication: HYPOAESTHESIA
     Dosage: 1500 UG, UNK
     Route: 048
     Dates: start: 20060625
  6. GASTER [Concomitant]
     Indication: ABDOMINAL DISCOMFORT
     Dosage: 20 MG, UNK
     Route: 048
     Dates: start: 20060625
  7. TETRAMIDE [Concomitant]
     Indication: DEPRESSION
     Dosage: 30 MG, UNK
     Route: 048
     Dates: start: 20000719, end: 20080514
  8. RIVOTRIL [Concomitant]
     Indication: DEPRESSION
     Dosage: UNK
     Route: 048
     Dates: start: 20080117, end: 20080305
  9. SEDIEL [Concomitant]
     Indication: DEPRESSION
     Dosage: UNK
     Route: 048
     Dates: start: 20040322
  10. MAGLAX [Concomitant]
     Indication: CONSTIPATION
     Dosage: UNK
     Route: 048
     Dates: start: 20021129
  11. WYPAX [Concomitant]
     Indication: ANXIETY
     Dosage: UNK
     Route: 048
     Dates: start: 20070725
  12. ZOLOFT [Concomitant]
     Indication: DEPRESSION
     Dosage: 75 MG, UNK
     Route: 048
     Dates: start: 20080423
  13. LEXOTAN [Concomitant]
     Indication: DEPRESSION
     Dosage: UNK
     Route: 048
     Dates: start: 20040322
  14. LEVODOPA [Concomitant]

REACTIONS (5)
  - CHEST PAIN [None]
  - DEPERSONALISATION [None]
  - DEREALISATION [None]
  - POLLAKIURIA [None]
  - SOMNOLENCE [None]
